FAERS Safety Report 10168322 (Version 6)
Quarter: 2015Q2

REPORT INFORMATION
  Report Type: Report from Study
  Country: FR (occurrence: FR)
  Receive Date: 20140512
  Receipt Date: 20150518
  Transmission Date: 20150821
  Serious: Yes (Other)
  Sender: FDA-Public Use
  Company Number: PHHO2014FR006540

PATIENT
  Age: 9 Year
  Sex: Female
  Weight: 37 kg

DRUGS (2)
  1. ACZ885 [Suspect]
     Active Substance: CANAKINUMAB
     Indication: JUVENILE IDIOPATHIC ARTHRITIS
     Dosage: 4 MG/KG/ 4 WEEKS
     Route: 058
     Dates: start: 20131129, end: 20140513
  2. PREDNISONE. [Concomitant]
     Active Substance: PREDNISONE
     Indication: JUVENILE IDIOPATHIC ARTHRITIS
     Dosage: 12.5 MG, QD
     Route: 048
     Dates: start: 20130115

REACTIONS (1)
  - Hepatocellular injury [Recovered/Resolved]

NARRATIVE: CASE EVENT DATE: 20140417
